FAERS Safety Report 18593898 (Version 2)
Quarter: 2020Q4

REPORT INFORMATION
  Report Type: Spontaneous
  Country: IL (occurrence: IL)
  Receive Date: 20201209
  Receipt Date: 20201223
  Transmission Date: 20210114
  Serious: Yes (Death, Hospitalization, Other)
  Sender: FDA-Public Use
  Company Number: IL-ROCHE-2728262

PATIENT
  Age: 46 Year
  Sex: Male

DRUGS (3)
  1. TECENTRIQ [Suspect]
     Active Substance: ATEZOLIZUMAB
     Indication: LUNG NEOPLASM MALIGNANT
     Route: 042
     Dates: start: 20201027, end: 20201027
  2. PRAMIN (ISRAEL) [Concomitant]
     Active Substance: IMIPRAMINE
  3. DEXACORT [Concomitant]
     Active Substance: DEXAMETHASONE SODIUM PHOSPHATE

REACTIONS (15)
  - Renal failure [Unknown]
  - Abdominal pain upper [Unknown]
  - Pain [Unknown]
  - Drug-induced liver injury [Fatal]
  - Chronic kidney disease [Unknown]
  - Hepatic necrosis [Unknown]
  - Hepatic failure [Unknown]
  - Unevaluable event [Unknown]
  - General physical health deterioration [Unknown]
  - Hepatitis acute [Unknown]
  - Vomiting [Recovering/Resolving]
  - Asthenia [Unknown]
  - Dyspnoea [Unknown]
  - Multiple organ dysfunction syndrome [Fatal]
  - Feeling abnormal [Unknown]

NARRATIVE: CASE EVENT DATE: 202011
